FAERS Safety Report 6511300-3 (Version None)
Quarter: 2009Q4

REPORT INFORMATION
  Report Type: 
  Country: None (occurrence: None)
  Receive Date: 20091222
  Receipt Date: 20090325
  Transmission Date: 20100525
  Serious: No
  Sender: FDA-Public Use
  Company Number: US-ASTRAZENECA-2009UW07553

PATIENT
  Age: 74 Year
  Sex: Female
  Weight: 72.6 kg

DRUGS (4)
  1. CRESTOR [Suspect]
     Indication: BLOOD CHOLESTEROL INCREASED
     Route: 048
  2. HYDROCHLOROTHIAZIDE [Concomitant]
  3. AMLODIPINE [Concomitant]
  4. LISINOPRIL [Concomitant]

REACTIONS (1)
  - ALOPECIA [None]
